FAERS Safety Report 8990970 (Version 2)
Quarter: 2013Q1

REPORT INFORMATION
  Report Type: Spontaneous
  Country: US (occurrence: None)
  Receive Date: 20121220
  Receipt Date: 20130318
  Transmission Date: 20140127
  Serious: Yes (Death, Life-Threatening, Hospitalization, Other)
  Sender: FDA-Public Use
  Company Number: 2012ST000771

PATIENT
  Age: 2 Month
  Sex: Male

DRUGS (9)
  1. ADAGEN [Suspect]
     Indication: COMBINED IMMUNODEFICIENCY
     Route: 030
     Dates: start: 20110103, end: 20110128
  2. CORTICOSTEROIDS [Concomitant]
  3. BACTRIM [Concomitant]
  4. FLUCONAZOLE [Concomitant]
  5. CASPOFUNGIN [Concomitant]
  6. PALIVIZUMAB [Concomitant]
  7. IMMUNOGLOBULIN HUMAN [Concomitant]
  8. GANCICLOVIR SODIUM (GANCICLOVIR SODIUM) [Concomitant]
  9. FOSCAMET (FOSCAMET SODIUM) [Concomitant]

REACTIONS (7)
  - Respiratory disorder [None]
  - Convulsion [None]
  - Roseolovirus test positive [None]
  - Stenotrophomonas test positive [None]
  - Pulmonary hypertension [None]
  - Lymphocyte count increased [None]
  - Condition aggravated [None]
